FAERS Safety Report 7962272-6 (Version None)
Quarter: 2011Q4

REPORT INFORMATION
  Report Type: 
  Country: None (occurrence: None)
  Receive Date: 20111205
  Receipt Date: 20111117
  Transmission Date: 20120403
  Serious: Yes (Hospitalization)
  Sender: FDA-Public Use
  Company Number: CIP11000546

PATIENT
  Age: 61 Year
  Sex: Female

DRUGS (20)
  1. ACTONEL [Suspect]
     Indication: OSTEOPOROSIS
     Dosage: 5 MG, DAILY, ORAL
     Route: 048
     Dates: start: 20010125
  2. BONIVA [Suspect]
     Indication: OSTEOPOROSIS
     Dosage: ORAL
     Route: 048
     Dates: start: 20051205, end: 20060208
  3. ASPIRIN [Concomitant]
  4. VITAMIN D [Concomitant]
  5. DECONSAL (CHLORPHENAMINE MALEATE, PSEUDOEPHEDRINE HYDROCHLORIDE) [Concomitant]
  6. BENADRYL [Concomitant]
  7. LISINOPRIL [Concomitant]
  8. ZYRTEC [Concomitant]
  9. NORVASC [Concomitant]
  10. ACTONEL [Suspect]
     Indication: OSTEOPOROSIS
     Dosage: 35 MG, ONCE WEEKLY, ORAL, 35 MG ONCE WEEKLY, ORAL, 35 MG ONCE WEEKLY, ORAL
     Route: 048
     Dates: start: 20021104, end: 20040309
  11. ACTONEL [Suspect]
     Indication: OSTEOPOROSIS
     Dosage: 35 MG, ONCE WEEKLY, ORAL, 35 MG ONCE WEEKLY, ORAL, 35 MG ONCE WEEKLY, ORAL
     Route: 048
     Dates: start: 20090208
  12. ACTONEL [Suspect]
     Indication: OSTEOPOROSIS
     Dosage: 35 MG, ONCE WEEKLY, ORAL, 35 MG ONCE WEEKLY, ORAL, 35 MG ONCE WEEKLY, ORAL
     Route: 048
     Dates: start: 20041012, end: 20051205
  13. LEVAQUIN [Concomitant]
  14. ULTRAM [Concomitant]
  15. MIACALCIN [Concomitant]
  16. CLARINEX (LORATADINE, PSEUDOEPHEDRINE SULFATE) [Concomitant]
  17. CORTISONE ACETATE [Concomitant]
  18. MECLIZINE HCL (MECLOZINE HYDROCHLORIDE) [Concomitant]
  19. CALCIUM CARBONATE [Concomitant]
  20. MOTRIN [Concomitant]

REACTIONS (30)
  - LUDWIG ANGINA [None]
  - LIP PAIN [None]
  - GASTROENTERITIS [None]
  - INFLUENZA [None]
  - FACIAL PAIN [None]
  - DROOLING [None]
  - ORAL PAIN [None]
  - MUSCULOSKELETAL STIFFNESS [None]
  - TOOTH DISORDER [None]
  - ABSCESS SOFT TISSUE [None]
  - GASTROOESOPHAGEAL REFLUX DISEASE [None]
  - DYSPHAGIA [None]
  - SENSORY DISTURBANCE [None]
  - MYALGIA [None]
  - ORAL PRURITUS [None]
  - GINGIVITIS [None]
  - TOOTHACHE [None]
  - SWELLING FACE [None]
  - LOCAL SWELLING [None]
  - PARAESTHESIA ORAL [None]
  - DENTAL CARIES [None]
  - LYMPHADENOPATHY [None]
  - INSOMNIA [None]
  - ABSCESS DRAINAGE [None]
  - HYPOAESTHESIA ORAL [None]
  - BURNING SENSATION [None]
  - LOOSE TOOTH [None]
  - DEVICE BREAKAGE [None]
  - TOOTH ABSCESS [None]
  - GASTRIC ULCER [None]
